FAERS Safety Report 26091140 (Version 4)
Quarter: 2025Q4

REPORT INFORMATION
  Report Type: Report from Study
  Country: CA (occurrence: CA)
  Receive Date: 20251126
  Receipt Date: 20251231
  Transmission Date: 20260118
  Serious: Yes (Other)
  Sender: TAKEDA
  Company Number: CA-TAKEDA-2025TUS091176

PATIENT
  Age: 27 Year
  Sex: Female

DRUGS (7)
  1. VEDOLIZUMAB [Suspect]
     Active Substance: VEDOLIZUMAB
     Indication: Colitis ulcerative
     Dosage: 300 MILLIGRAM
  2. VEDOLIZUMAB [Suspect]
     Active Substance: VEDOLIZUMAB
     Dosage: 300 MILLIGRAM
  3. VEDOLIZUMAB [Suspect]
     Active Substance: VEDOLIZUMAB
     Dosage: 300 MILLIGRAM
  4. ATIVAN [Suspect]
     Active Substance: LORAZEPAM
     Indication: Product used for unknown indication
     Dosage: UNK
  5. Salofalk [Concomitant]
     Dosage: UNK
  6. Salofalk [Concomitant]
     Dosage: UNK
  7. STROMECTOL [Concomitant]
     Active Substance: IVERMECTIN
     Dosage: UNK

REACTIONS (33)
  - Syncope [Recovering/Resolving]
  - Anxiety [Unknown]
  - Defaecation urgency [Unknown]
  - Stress [Unknown]
  - Pulmonary pain [Not Recovered/Not Resolved]
  - Insomnia [Not Recovered/Not Resolved]
  - Dysphagia [Not Recovered/Not Resolved]
  - Fall [Unknown]
  - Contusion [Unknown]
  - Bursitis [Unknown]
  - Musculoskeletal chest pain [Not Recovered/Not Resolved]
  - Scabies [Recovering/Resolving]
  - Laryngitis [Unknown]
  - Viral infection [Unknown]
  - Liver disorder [Unknown]
  - Diarrhoea [Unknown]
  - Somnolence [Unknown]
  - Blood pressure diastolic decreased [Unknown]
  - Hot flush [Unknown]
  - Hyperhidrosis [Unknown]
  - Musculoskeletal stiffness [Unknown]
  - Dizziness [Unknown]
  - Asthenia [Unknown]
  - Dyspnoea [Unknown]
  - Blood pressure increased [Unknown]
  - Vision blurred [Unknown]
  - Malaise [Unknown]
  - Abdominal pain [Unknown]
  - Flatulence [Unknown]
  - Constipation [Unknown]
  - Arthralgia [Unknown]
  - Fatigue [Unknown]
  - Influenza [Not Recovered/Not Resolved]

NARRATIVE: CASE EVENT DATE: 20251001
